FAERS Safety Report 10261630 (Version 1)
Quarter: 2014Q2

REPORT INFORMATION
  Report Type: Spontaneous
  Country: US (occurrence: US)
  Receive Date: 20140626
  Receipt Date: 20140626
  Transmission Date: 20141212
  Serious: Yes (Other)
  Sender: FDA-Public Use
  Company Number: US-PFIZER INC-2014174391

PATIENT
  Age: 78 Year
  Sex: Female
  Weight: 62.59 kg

DRUGS (4)
  1. LYRICA [Suspect]
     Indication: NEUROPATHY PERIPHERAL
     Dosage: 75 MG, 3X/DAY
     Dates: start: 2004
  2. LYRICA [Suspect]
     Dosage: UNK
  3. LYRICA [Suspect]
     Dosage: 75MG IN MORNING AND 150MG AT BED TIME
  4. LYRICA [Suspect]
     Dosage: 150 MG, 2X/DAY

REACTIONS (4)
  - Diabetes mellitus [Unknown]
  - Neuropathy peripheral [Unknown]
  - Dizziness [Unknown]
  - Stress [Unknown]
